FAERS Safety Report 4533685-X (Version None)
Quarter: 2004Q4

REPORT INFORMATION
  Report Type: 
  Country: None (occurrence: None)
  Receive Date: 20041221
  Receipt Date: 20041210
  Transmission Date: 20050328
  Serious: Yes (Death)
  Sender: FDA-Public Use
  Company Number: US-GLAXOSMITHKLINE-A0536851A

PATIENT
  Age: 48 Year
  Sex: Male

DRUGS (2)
  1. EPZICOM [Suspect]
     Indication: HIV INFECTION
     Dosage: 1TAB PER DAY
     Route: 048
     Dates: start: 20041115, end: 20041202
  2. LEXIVA [Concomitant]
     Dates: end: 20041202

REACTIONS (3)
  - DEATH [None]
  - INFLUENZA LIKE ILLNESS [None]
  - RASH [None]
